FAERS Safety Report 8480246-6 (Version None)
Quarter: 2012Q2

REPORT INFORMATION
  Report Type: 
  Country: None (occurrence: None)
  Receive Date: 20120629
  Receipt Date: 20050303
  Transmission Date: 20120825
  Serious: Yes (Hospitalization, Other)
  Sender: FDA-Public Use
  Company Number: PHHY2005SG007166

PATIENT
  Sex: Female

DRUGS (2)
  1. IMATINIB MESYLATE [Suspect]
     Indication: CHRONIC MYELOID LEUKAEMIA
     Dosage: 400 MG, DAILY
     Dates: start: 20010612
  2. IMATINIB MESYLATE [Suspect]
     Dosage: 800 MG, DAILY

REACTIONS (9)
  - MOUTH HAEMORRHAGE [None]
  - DECREASED APPETITE [None]
  - CARDIAC DISORDER [None]
  - SYNCOPE [None]
  - HYPERTENSION [None]
  - DYSPNOEA [None]
  - WHITE BLOOD CELL COUNT ABNORMAL [None]
  - PAIN [None]
  - INTESTINAL HAEMORRHAGE [None]
